FAERS Safety Report 17372754 (Version 1)
Quarter: 2020Q1

REPORT INFORMATION
  Report Type: Report from Study
  Country: DE (occurrence: DE)
  Receive Date: 20200205
  Receipt Date: 20200205
  Transmission Date: 20200409
  Serious: Yes (Hospitalization, Other)
  Sender: FDA-Public Use
  Company Number: DE-MYLANLABS-2020M1012929

PATIENT
  Age: 59 Year
  Sex: Female

DRUGS (8)
  1. BACLOFEN. [Suspect]
     Active Substance: BACLOFEN
     Indication: MUSCLE SPASTICITY
     Dosage: UNK
     Route: 065
     Dates: start: 201904
  2. PARACETAMOL [Concomitant]
     Active Substance: ACETAMINOPHEN
     Indication: PREMEDICATION
     Dosage: UNK
  3. L-THYROXIN                         /00068001/ [Concomitant]
     Active Substance: LEVOTHYROXINE
     Dosage: 100 MICROGRAM, QD
     Route: 065
  4. FAMPYRA [Concomitant]
     Active Substance: DALFAMPRIDINE
     Dosage: 2 DOSAGE FORM, QD
     Route: 065
  5. OCRELIZUMAB. [Suspect]
     Active Substance: OCRELIZUMAB
     Dosage: 600 MILLIGRAM, (197 DAYS)
     Route: 042
  6. SIRDALUD [Concomitant]
     Active Substance: TIZANIDINE
     Dosage: 1 MILLIGRAM, QD
     Route: 065
  7. METHYLPREDNISOLON                  /00049601/ [Concomitant]
     Active Substance: METHYLPREDNISOLONE
     Indication: PREMEDICATION
     Dosage: UNK
  8. OCRELIZUMAB. [Suspect]
     Active Substance: OCRELIZUMAB
     Indication: PRIMARY PROGRESSIVE MULTIPLE SCLEROSIS
     Dosage: 300 MILLIGRAM(26/SEP/2018: 600 MG)
     Route: 042
     Dates: start: 20180314

REACTIONS (17)
  - Hypoaesthesia [Not Recovered/Not Resolved]
  - Peroneal nerve palsy [Not Recovered/Not Resolved]
  - Rhinorrhoea [Recovered/Resolved]
  - Muscle spasticity [Recovered/Resolved]
  - Nasopharyngitis [Recovered/Resolved]
  - Fall [Unknown]
  - Feeling cold [Not Recovered/Not Resolved]
  - Balance disorder [Not Recovered/Not Resolved]
  - Intervertebral disc protrusion [Not Recovered/Not Resolved]
  - Bone cyst [Unknown]
  - Spinal disorder [Unknown]
  - Cervical vertebral fracture [Recovered/Resolved]
  - Pain [Recovered/Resolved]
  - Gait disturbance [Not Recovered/Not Resolved]
  - Spondylolisthesis [Not Recovered/Not Resolved]
  - Ligament injury [Not Recovered/Not Resolved]
  - Urticaria [Recovered/Resolved]

NARRATIVE: CASE EVENT DATE: 20180315
